FAERS Safety Report 9494564 (Version 1)
Quarter: 2013Q3

REPORT INFORMATION
  Report Type: Spontaneous
  Country: IT (occurrence: None)
  Receive Date: 20130828
  Receipt Date: 20130828
  Transmission Date: 20140515
  Serious: Yes (Other)
  Sender: FDA-Public Use
  Company Number: 2013P1018587

PATIENT
  Age: 63 Year
  Sex: Male

DRUGS (2)
  1. ISOSORBIDE DINITRATE [Suspect]
     Route: 060
  2. RADIOISOTOPE [Concomitant]

REACTIONS (2)
  - Myocardial ischaemia [None]
  - Paradoxical drug reaction [None]
